FAERS Safety Report 9366923 (Version 2)
Quarter: 2016Q2

REPORT INFORMATION
  Report Type: Spontaneous
  Country: US (occurrence: US)
  Receive Date: 20130625
  Receipt Date: 20160411
  Transmission Date: 20160815
  Serious: Yes (Disabling)
  Sender: FDA-Public Use
  Company Number: US-009507513-1306USA011942

PATIENT
  Sex: Female
  Weight: 68.27 kg

DRUGS (1)
  1. MEVACOR [Suspect]
     Active Substance: LOVASTATIN
     Indication: BLOOD CHOLESTEROL INCREASED
     Dosage: UNK
     Route: 048
     Dates: start: 2006

REACTIONS (4)
  - Myalgia [Unknown]
  - Abasia [Unknown]
  - Joint swelling [Unknown]
  - Drug ineffective [Unknown]
